FAERS Safety Report 17402431 (Version 1)
Quarter: 2020Q1

REPORT INFORMATION
  Report Type: Spontaneous
  Country: US (occurrence: US)
  Receive Date: 20200210
  Receipt Date: 20200210
  Transmission Date: 20200409
  Serious: No
  Sender: FDA-Public Use
  Company Number: None

PATIENT
  Age: 45 Year
  Sex: Female
  Weight: 67.5 kg

DRUGS (7)
  1. B VITAMINS [Concomitant]
     Active Substance: CYANOCOBALAMIN\DEXPANTHENOL\NIACINAMIDE\PYRIDOXINE HYDROCHLORIDE\RIBOFLAVIN 5^-PHOSPHATE SODIUM\THIAMINE HYDROCHLORIDE\VITAMIN B COMPLEX
  2. WOMENS MULTIVITAMIN [Concomitant]
  3. GADAVIST [Suspect]
     Active Substance: GADOBUTROL
     Indication: MAGNETIC RESONANCE IMAGING
     Dosage: ?          QUANTITY:6.5 ML;?
     Route: 042
     Dates: start: 20160913, end: 20191227
  4. VITAMIN C [Concomitant]
     Active Substance: ASCORBIC ACID
  5. GARLIC. [Concomitant]
     Active Substance: GARLIC
  6. TUMERIC [Concomitant]
     Active Substance: HERBALS\TURMERIC
  7. GINGER. [Concomitant]
     Active Substance: GINGER

REACTIONS (28)
  - Malaise [None]
  - Contrast media toxicity [None]
  - Musculoskeletal stiffness [None]
  - Abdominal pain upper [None]
  - Constipation [None]
  - Pruritus [None]
  - Temperature intolerance [None]
  - Fatigue [None]
  - Tinnitus [None]
  - Balance disorder [None]
  - Rash erythematous [None]
  - Hypersensitivity [None]
  - Headache [None]
  - Rash papular [None]
  - Burning sensation [None]
  - Anxiety [None]
  - Dizziness [None]
  - Nausea [None]
  - Amnesia [None]
  - Myalgia [None]
  - Arthralgia [None]
  - Abdominal distension [None]
  - Dry eye [None]
  - Chills [None]
  - Pain [None]
  - Asthenia [None]
  - Alopecia [None]
  - Disturbance in attention [None]

NARRATIVE: CASE EVENT DATE: 20191227
